FAERS Safety Report 6608459-6 (Version None)
Quarter: 2010Q1

REPORT INFORMATION
  Report Type: 
  Country: None (occurrence: None)
  Receive Date: 20100226
  Receipt Date: 20100226
  Transmission Date: 20100710
  Serious: No
  Sender: FDA-Public Use
  Company Number: None

PATIENT
  Sex: Female
  Weight: 54.4316 kg

DRUGS (13)
  1. NITROFURANTOIN [Suspect]
     Dosage: 50MG QID PO
     Route: 048
  2. NAMENDA [Concomitant]
  3. METOPROLOL TARTRATE [Concomitant]
  4. MIRALAX [Concomitant]
  5. ASPIRIN [Concomitant]
  6. LISINOPRIL [Concomitant]
  7. TYLENOL-500 [Concomitant]
  8. SEROQUEL [Concomitant]
  9. ALDENRONATE [Concomitant]
  10. VIT D [Concomitant]
  11. SENNA [Concomitant]
  12. CHEWABLE MULTIVITAMINS [Concomitant]
  13. CRANBERRY EXTRACT CAPS [Concomitant]

REACTIONS (7)
  - ALANINE AMINOTRANSFERASE INCREASED [None]
  - ASPARTATE AMINOTRANSFERASE INCREASED [None]
  - BILIRUBIN CONJUGATED INCREASED [None]
  - BLOOD ALKALINE PHOSPHATASE INCREASED [None]
  - BLOOD BILIRUBIN INCREASED [None]
  - GAMMA-GLUTAMYLTRANSFERASE INCREASED [None]
  - LIVER FUNCTION TEST ABNORMAL [None]
